FAERS Safety Report 5109619-6 (Version None)
Quarter: 2006Q3

REPORT INFORMATION
  Report Type: 
  Country: None (occurrence: None)
  Receive Date: 20060731
  Receipt Date: 20060523
  Transmission Date: 20061208
  Serious: No
  Sender: FDA-Public Use
  Company Number: 2006PV014394

PATIENT
  Age: 71 Year
  Sex: Male
  Weight: 131.0895 kg

DRUGS (4)
  1. BYETTA [Suspect]
     Indication: DIABETES MELLITUS
     Dosage: 5 MCG;BID;SC
     Route: 058
     Dates: start: 20060503
  2. NOVOLIN 70/30 [Concomitant]
  3. ACTOS [Concomitant]
  4. ANTIBIOTIC [Concomitant]

REACTIONS (4)
  - BLOOD GLUCOSE INCREASED [None]
  - CONSTIPATION [None]
  - FAECES HARD [None]
  - WEIGHT DECREASED [None]
